FAERS Safety Report 17240731 (Version 1)
Quarter: 2020Q1

REPORT INFORMATION
  Report Type: Spontaneous
  Country: US (occurrence: US)
  Receive Date: 20200107
  Receipt Date: 20200107
  Transmission Date: 20200409
  Serious: Yes (Other)
  Sender: FDA-Public Use
  Company Number: US-PBT-000129

PATIENT
  Age: 61 Year

DRUGS (7)
  1. CICLOSPORIN (CYCLOSPORIN) [Suspect]
     Active Substance: CYCLOSPORINE
     Indication: ACQUIRED AMEGAKARYOCYTIC THROMBOCYTOPENIA
     Route: 065
  2. TACROLIMUS. [Suspect]
     Active Substance: TACROLIMUS
     Indication: PROPHYLAXIS AGAINST GRAFT VERSUS HOST DISEASE
     Route: 065
  3. PREDNISONE. [Suspect]
     Active Substance: PREDNISONE
     Indication: ACQUIRED AMEGAKARYOCYTIC THROMBOCYTOPENIA
     Route: 065
  4. ELTROMBOPAG [Suspect]
     Active Substance: ELTROMBOPAG
     Indication: ACQUIRED AMEGAKARYOCYTIC THROMBOCYTOPENIA
  5. ELTROMBOPAG [Suspect]
     Active Substance: ELTROMBOPAG
     Indication: APLASIA PURE RED CELL
     Route: 065
  6. CICLOSPORIN (CYCLOSPORIN) [Suspect]
     Active Substance: CYCLOSPORINE
     Indication: APLASIA PURE RED CELL
     Route: 065
  7. PREDNISONE. [Suspect]
     Active Substance: PREDNISONE
     Indication: APLASIA PURE RED CELL
     Route: 065

REACTIONS (4)
  - Product use in unapproved indication [Unknown]
  - Aplastic anaemia [Recovered/Resolved]
  - Cytomegalovirus infection [Unknown]
  - Drug ineffective [Unknown]
